FAERS Safety Report 11998403 (Version 4)
Quarter: 2016Q3

REPORT INFORMATION
  Report Type: Report from Study
  Country: CA (occurrence: CA)
  Receive Date: 20160203
  Receipt Date: 20160926
  Transmission Date: 20161109
  Serious: Yes (Death, Other)
  Sender: FDA-Public Use
  Company Number: CA-ROCHE-1687430

PATIENT
  Age: 72 Year
  Sex: Male

DRUGS (17)
  1. ESBRIET [Suspect]
     Active Substance: PIRFENIDONE
     Indication: IDIOPATHIC PULMONARY FIBROSIS
     Route: 048
     Dates: start: 20151223
  2. TEMAZEPAM. [Concomitant]
     Active Substance: TEMAZEPAM
  3. SYMBICORT [Concomitant]
     Active Substance: BUDESONIDE\FORMOTEROL FUMARATE DIHYDRATE
  4. CARVEDILOL. [Concomitant]
     Active Substance: CARVEDILOL
  5. DICLOFENAC [Concomitant]
     Active Substance: DICLOFENAC
  6. ESBRIET [Suspect]
     Active Substance: PIRFENIDONE
     Route: 048
     Dates: start: 20151230
  7. ROSUVASTATIN. [Concomitant]
     Active Substance: ROSUVASTATIN
  8. ATROVENT [Concomitant]
     Active Substance: IPRATROPIUM BROMIDE
  9. PERINDOPRIL ERBUMINE. [Concomitant]
     Active Substance: PERINDOPRIL ERBUMINE
  10. AMIODARONE [Concomitant]
     Active Substance: AMIODARONE
  11. VENTOLIN [Concomitant]
     Active Substance: ALBUTEROL SULFATE
  12. ESBRIET [Suspect]
     Active Substance: PIRFENIDONE
     Route: 048
     Dates: start: 201601
  13. ESBRIET [Suspect]
     Active Substance: PIRFENIDONE
     Route: 048
     Dates: start: 20160106
  14. PREDNISONE. [Concomitant]
     Active Substance: PREDNISONE
  15. LASIX [Concomitant]
     Active Substance: FUROSEMIDE
  16. SPIRONOLACTONE. [Concomitant]
     Active Substance: SPIRONOLACTONE
  17. CALCARB [Concomitant]

REACTIONS (5)
  - Lung disorder [Fatal]
  - Forced vital capacity decreased [Unknown]
  - Carbon monoxide diffusing capacity decreased [Unknown]
  - Dizziness [Not Recovered/Not Resolved]
  - Pneumonia [Recovering/Resolving]

NARRATIVE: CASE EVENT DATE: 20160916
